FAERS Safety Report 4471159-5 (Version None)
Quarter: 2004Q4

REPORT INFORMATION
  Report Type: 
  Country: None (occurrence: None)
  Receive Date: 20041004
  Receipt Date: 20040917
  Transmission Date: 20050328
  Serious: Yes (Hospitalization)
  Sender: FDA-Public Use
  Company Number: B0346013A

PATIENT
  Age: 28 Year
  Sex: Male

DRUGS (1)
  1. SUMATRIPTAN SUCCINATE [Suspect]

REACTIONS (9)
  - APHASIA [None]
  - CAROTID ARTERY OCCLUSION [None]
  - CEREBRAL ARTERY OCCLUSION [None]
  - CEREBRAL INFARCTION [None]
  - FALL [None]
  - HEMIPLEGIA [None]
  - ISCHAEMIC STROKE [None]
  - PAIN EXACERBATED [None]
  - VASCULAR PSEUDOANEURYSM [None]
